FAERS Safety Report 19581660 (Version 2)
Quarter: 2021Q3

REPORT INFORMATION
  Report Type: Report from Study
  Country: IE (occurrence: IE)
  Receive Date: 20210720
  Receipt Date: 20210907
  Transmission Date: 20211014
  Serious: Yes (Hospitalization)
  Sender: FDA-Public Use
  Company Number: NVSC2021IE155670

PATIENT
  Age: 73 Year
  Sex: Female

DRUGS (2)
  1. BYL719 [Suspect]
     Active Substance: ALPELISIB
     Indication: BREAST CANCER METASTATIC
     Dosage: 300 MG
     Route: 048
     Dates: start: 20210616, end: 20210628
  2. BYL719 [Suspect]
     Active Substance: ALPELISIB
     Dosage: 200 MG
     Route: 048

REACTIONS (4)
  - Pyrexia [Recovered/Resolved]
  - Malaise [Unknown]
  - Fatigue [Recovering/Resolving]
  - C-reactive protein increased [Unknown]

NARRATIVE: CASE EVENT DATE: 20210625
